FAERS Safety Report 6156294-8 (Version None)
Quarter: 2009Q2

REPORT INFORMATION
  Report Type: 
  Country: None (occurrence: None)
  Receive Date: 20090413
  Receipt Date: 20090331
  Transmission Date: 20091009
  Serious: Yes (Other)
  Sender: FDA-Public Use
  Company Number: 233548K09USA

PATIENT
  Age: 56 Year
  Sex: Female

DRUGS (8)
  1. REBIF [Suspect]
     Indication: MULTIPLE SCLEROSIS
     Dosage: 44 MCG, 3 IN 1 WEEKS, SUBCUTANEOUS
     Route: 058
     Dates: start: 20060710
  2. SYMMETREL [Concomitant]
  3. VALIUM [Concomitant]
  4. BENICAR [Concomitant]
  5. ZOCOR [Concomitant]
  6. NEXIUM [Concomitant]
  7. ADVIL [Concomitant]
  8. FLEXERIL [Concomitant]

REACTIONS (5)
  - EYE DISORDER [None]
  - EYE PAIN [None]
  - HEPATIC ENZYME INCREASED [None]
  - MYODESOPSIA [None]
  - VISUAL IMPAIRMENT [None]
